FAERS Safety Report 9509090 (Version 1)
Quarter: 2013Q1

REPORT INFORMATION
  Report Type: Spontaneous
  Country: US (occurrence: None)
  Receive Date: 20130305
  Receipt Date: 20130305
  Transmission Date: 20140127
  Serious: Yes (Other)
  Sender: FDA-Public Use
  Company Number: 163-21880-12082047

PATIENT
  Age: 75 Year
  Sex: Male
  Weight: 91.63 kg

DRUGS (13)
  1. REVLIMID [Suspect]
     Indication: PLASMA CELL MYELOMA
     Route: 048
     Dates: start: 20120720
  2. REVLIMID [Suspect]
     Indication: MYELODYSPLASTIC SYNDROME
     Route: 048
     Dates: start: 20120720
  3. ASPIRIN (ACETYLSALICYLIC ACID) (UNKNOWN) (ACETYLSALICYLIC ACID) [Concomitant]
  4. ATENOLOL (ATENOLOL) (TABLETS) [Concomitant]
  5. DEXAMETHASONE (DEXAMETHASONE) (UNKNOWN) [Concomitant]
  6. DOCUSATE SODIUM (DOCUSATE SODIUM) (UNKNOWN) [Concomitant]
  7. MULTIVITAMINS (MULTIVITAMINS) (CAPSULES) [Concomitant]
  8. NITROGLYCERINE (GLYCERYL TRINITRATE) (CAPSULES) [Concomitant]
  9. SENDODYNE (STRONTIUM CHLORIDE) (GEL) [Concomitant]
  10. TAMSULOSIN (TAMSULOSIN) (CAPSULES) [Concomitant]
  11. ZANTAC (RANITIDINE HYDROCHLORIDE) (TABLETS) [Concomitant]
  12. ZENPEP (PANCRELIPASE) (CAPSULES) [Concomitant]
  13. ZOCOR (SIMVASTATIN) (UNKNOWN) [Concomitant]

REACTIONS (1)
  - Hyperglycaemia [None]
